FAERS Safety Report 21065898 (Version 2)
Quarter: 2022Q3

REPORT INFORMATION
  Report Type: Spontaneous
  Country: JP (occurrence: JP)
  Receive Date: 20220711
  Receipt Date: 20220901
  Transmission Date: 20221026
  Serious: Yes (Other)
  Sender: FDA-Public Use
  Company Number: JP-PFIZER INC-PV202200017166

PATIENT
  Age: 72 Year
  Sex: Male
  Weight: 60 kg

DRUGS (8)
  1. ATORVASTATIN CALCIUM [Suspect]
     Active Substance: ATORVASTATIN CALCIUM
     Indication: Dyslipidaemia
     Dosage: 5 MG, 1X/DAY
     Route: 048
     Dates: start: 20190708, end: 20190930
  2. NICORANDIL [Concomitant]
     Active Substance: NICORANDIL
     Dosage: 5 MG, 2X/DAY
     Route: 048
  3. VALSARTAN [Concomitant]
     Active Substance: VALSARTAN
     Dosage: 40 MG, DAILY
     Route: 048
  4. JANUVIA [Concomitant]
     Active Substance: SITAGLIPTIN PHOSPHATE
     Dosage: 50 MG, DAILY
     Route: 048
  5. ASPIRIN [Concomitant]
     Active Substance: ASPIRIN
     Dosage: 100 MG, DAILY
     Route: 048
  6. FAMOTIDINE [Concomitant]
     Active Substance: FAMOTIDINE
     Dosage: 20 MG, 2X/DAY
     Route: 048
  7. SHAKUYAKUKANZOTO [Concomitant]
     Active Substance: HERBALS
     Dosage: 2 G, AS NEEDED
     Route: 048
  8. CARBOCYSTEINE [Concomitant]
     Active Substance: CARBOCYSTEINE
     Dosage: 500 MG, 3X/DAY
     Route: 048

REACTIONS (3)
  - Blood creatine phosphokinase increased [Recovered/Resolved]
  - Blood alkaline phosphatase increased [Unknown]
  - Blood lactate dehydrogenase increased [Unknown]

NARRATIVE: CASE EVENT DATE: 20190930
